FAERS Safety Report 25621149 (Version 1)
Quarter: 2025Q3

REPORT INFORMATION
  Report Type: Report from Study
  Country: CA (occurrence: CA)
  Receive Date: 20250730
  Receipt Date: 20250730
  Transmission Date: 20251021
  Serious: Yes (Other)
  Sender: TAKEDA
  Company Number: CA-TAKEDA-2024TUS107663

PATIENT
  Age: 78 Year
  Sex: Female

DRUGS (2)
  1. VEDOLIZUMAB [Suspect]
     Active Substance: VEDOLIZUMAB
     Indication: Crohn^s disease
  2. MAGNESIUM [Suspect]
     Active Substance: MAGNESIUM
     Indication: Product used for unknown indication

REACTIONS (13)
  - Mental impairment [Not Recovered/Not Resolved]
  - Insomnia [Unknown]
  - Lethargy [Unknown]
  - Inappropriate schedule of product administration [Unknown]
  - Illness [Unknown]
  - Cognitive disorder [Unknown]
  - Diarrhoea [Unknown]
  - Chest pain [Unknown]
  - Decreased appetite [Unknown]
  - Feeling cold [Unknown]
  - Chills [Unknown]
  - Cough [Unknown]
  - Nasopharyngitis [Unknown]

NARRATIVE: CASE EVENT DATE: 20241010
